FAERS Safety Report 15223215 (Version 1)
Quarter: 2018Q3

REPORT INFORMATION
  Report Type: Report from Study
  Country: CN (occurrence: CN)
  Receive Date: 20180731
  Receipt Date: 20180731
  Transmission Date: 20181010
  Serious: Yes (Other)
  Sender: FDA-Public Use
  Company Number: CN-PFIZER INC-2018305265

PATIENT

DRUGS (3)
  1. CARBOPLATIN. [Suspect]
     Active Substance: CARBOPLATIN
     Indication: NON-SMALL CELL LUNG CANCER
     Dosage: UNK, CYCLIC (AUC=6 ON DAYS 1 AND 21, 21 DAYS CYCLE)
  2. PACLITAXEL. [Suspect]
     Active Substance: PACLITAXEL
     Indication: NON-SMALL CELL LUNG CANCER
     Dosage: 175 MG/M2, CYCLIC (ON DAY 1, 21 DAYS CYCLE)
  3. BEVACIZUMAB. [Suspect]
     Active Substance: BEVACIZUMAB
     Indication: NON-SMALL CELL LUNG CANCER
     Dosage: 15 MG/KG, CYCLIC (ON DAY 1 OF EVERY CYCLE, 21 DAYS CYCLE, DISSOLVE IT IN 100 ML OF SALINE)

REACTIONS (1)
  - Acute kidney injury [Recovered/Resolved]
